FAERS Safety Report 6431374-8 (Version None)
Quarter: 2009Q4

REPORT INFORMATION
  Report Type: 
  Country: None (occurrence: None)
  Receive Date: 20091106
  Receipt Date: 20091026
  Transmission Date: 20100525
  Serious: Yes (Hospitalization, Other)
  Sender: FDA-Public Use
  Company Number: PHEH2009US11498

PATIENT
  Sex: Female
  Weight: 57.823 kg

DRUGS (20)
  1. ZOMETA [Suspect]
     Indication: BREAST CANCER
     Dosage: 4 MG EVERY 21 DAYS
     Route: 042
     Dates: start: 20090211, end: 20090325
  2. CYTOXAN [Suspect]
     Indication: BREAST CANCER
     Dosage: 960 MG, UNK
     Route: 042
     Dates: start: 20090211, end: 20090325
  3. TAXOTERE [Suspect]
     Indication: BREAST CANCER
     Dosage: 120 MG EVERY 21 DAYS
     Route: 042
     Dates: start: 20090211, end: 20090325
  4. NEUPOGEN [Suspect]
     Dosage: 5 MCG/KG PER DAY
  5. LEVOXYL [Concomitant]
     Dosage: 0.75 MG, QD
     Route: 048
  6. CITRUCEL [Concomitant]
     Dosage: UNK
     Route: 048
  7. COD-LIVER OIL [Concomitant]
     Dosage: 1 TSP, PRN
     Route: 048
  8. GABAPENTIN [Concomitant]
     Dosage: 600 MG, BID
     Route: 048
  9. METFORMIN [Concomitant]
     Dosage: 500 MG, QD
     Route: 048
  10. MIRALAX [Concomitant]
     Dosage: UNK
     Route: 048
  11. OCUVITE                            /01053801/ [Concomitant]
     Dosage: 1 UNK, QD
     Route: 048
  12. PROCHLORPERAZINE MALEATE [Concomitant]
     Dosage: 10 MG Q 4-6 HRS PRN
  13. REFRESH TEARS LUBRICANT [Concomitant]
     Dosage: UNK
  14. ROLAIDS [Concomitant]
     Dosage: 1 UNK, QHS
     Route: 048
  15. SIMVASTATIN [Concomitant]
     Dosage: 40 MG, QD
     Route: 048
  16. STOOL SOFTENER [Concomitant]
     Dosage: 100 MG, PRN
     Route: 048
  17. TRIAMTERENE AND HYDROCHLOROTHIAZID ^HARRIS^ [Concomitant]
     Dosage: 37.5/25 MG EVERY 3 DAYS
     Route: 048
  18. VIACTIV                                 /USA/ [Concomitant]
     Dosage: 1000 MG, QD
     Route: 048
  19. VITAMIN D [Concomitant]
     Dosage: 50,000 UNIT EVERY WEEK
     Route: 048
  20. HUMALOG [Concomitant]

REACTIONS (14)
  - ALOPECIA [None]
  - ANAEMIA [None]
  - ATELECTASIS [None]
  - BLOOD CALCIUM DECREASED [None]
  - BLOOD CREATININE DECREASED [None]
  - BLOOD POTASSIUM DECREASED [None]
  - C-REACTIVE PROTEIN INCREASED [None]
  - COUGH [None]
  - DYSPNOEA [None]
  - EPIGASTRIC DISCOMFORT [None]
  - HYPOTENSION [None]
  - LEUKOCYTOSIS [None]
  - PROTEIN TOTAL DECREASED [None]
  - PYREXIA [None]
